FAERS Safety Report 5700881-5 (Version None)
Quarter: 2008Q2

REPORT INFORMATION
  Report Type: 
  Country: None (occurrence: None)
  Receive Date: 20080410
  Receipt Date: 20080403
  Transmission Date: 20081010
  Serious: Yes (Death)
  Sender: FDA-Public Use
  Company Number: A0699348A

PATIENT
  Sex: Female

DRUGS (1)
  1. ADVAIR HFA [Suspect]
     Indication: ASTHMA
     Route: 055
     Dates: end: 20060606

REACTIONS (3)
  - ANOXIC ENCEPHALOPATHY [None]
  - LUNG HYPERINFLATION [None]
  - RESPIRATORY ARREST [None]
